FAERS Safety Report 5076889-2 (Version None)
Quarter: 2006Q3

REPORT INFORMATION
  Report Type: 
  Country: None (occurrence: None)
  Receive Date: 20060725
  Receipt Date: 20060313
  Transmission Date: 20061208
  Serious: No
  Sender: FDA-Public Use
  Company Number: 200610737BWH

PATIENT
  Age: 59 Year
  Sex: Female
  Weight: 87.9978 kg

DRUGS (3)
  1. NEXAVAR [Suspect]
     Indication: RENAL CELL CARCINOMA STAGE UNSPECIFIED
     Dosage: 400 MG, BID, ORAL
     Route: 048
     Dates: start: 20060117
  2. TYLENOL PM (DIPHENHYDRAMINE, PARACETAMOL) [Concomitant]
  3. CHEMOTHERAPY [Concomitant]

REACTIONS (18)
  - ABDOMINAL PAIN UPPER [None]
  - ALOPECIA [None]
  - ANOREXIA [None]
  - BACK PAIN [None]
  - DECREASED APPETITE [None]
  - EPISTAXIS [None]
  - ERYTHEMA [None]
  - HYPERTENSION [None]
  - MOTOR DYSFUNCTION [None]
  - NAUSEA [None]
  - PAIN IN EXTREMITY [None]
  - PALMAR-PLANTAR ERYTHRODYSAESTHESIA SYNDROME [None]
  - PARAESTHESIA [None]
  - PHARYNGOLARYNGEAL PAIN [None]
  - PRURITUS [None]
  - RASH MACULAR [None]
  - RHINORRHOEA [None]
  - STOMATITIS [None]
